FAERS Safety Report 21798004 (Version 1)
Quarter: 2022Q4

REPORT INFORMATION
  Report Type: Report from Study
  Country: US (occurrence: US)
  Receive Date: 20221230
  Receipt Date: 20221230
  Transmission Date: 20230113
  Serious: Yes (Other)
  Sender: FDA-Public Use
  Company Number: US-ABBVIE-4253176

PATIENT
  Age: 68 Year
  Sex: Female

DRUGS (1)
  1. HUMIRA [Suspect]
     Active Substance: ADALIMUMAB
     Indication: Psoriasis
     Route: 058
     Dates: start: 20200611

REACTIONS (6)
  - Rotator cuff repair [Recovering/Resolving]
  - Hip arthroplasty [Recovering/Resolving]
  - Intervertebral disc operation [Recovering/Resolving]
  - Psoriasis [Unknown]
  - Sciatica [Unknown]
  - Stress [Unknown]

NARRATIVE: CASE EVENT DATE: 20210101
